FAERS Safety Report 5370162-0 (Version None)
Quarter: 2007Q2

REPORT INFORMATION
  Report Type: 
  Country: None (occurrence: None)
  Receive Date: 20070614
  Receipt Date: 20070416
  Transmission Date: 20071010
  Serious: Yes (Other)
  Sender: FDA-Public Use
  Company Number: BDI-009379

PATIENT
  Sex: Female

DRUGS (2)
  1. MULTIHANCE [Suspect]
     Indication: MENINGIOMA
     Dosage: 15 ML ONCE IV
     Route: 042
     Dates: start: 20070416, end: 20070416
  2. MULTIHANCE [Suspect]
     Indication: NUCLEAR MAGNETIC RESONANCE IMAGING BRAIN
     Dosage: 15 ML ONCE IV
     Route: 042
     Dates: start: 20070416, end: 20070416

REACTIONS (4)
  - DYSGEUSIA [None]
  - DYSPNOEA [None]
  - HEADACHE [None]
  - THROAT TIGHTNESS [None]
